FAERS Safety Report 25029345 (Version 1)
Quarter: 2025Q1

REPORT INFORMATION
  Report Type: Spontaneous
  Country: US (occurrence: US)
  Receive Date: 20250303
  Receipt Date: 20250303
  Transmission Date: 20250409
  Serious: No
  Sender: JOHNSON AND JOHNSON
  Company Number: US-JNJFOC-20250280497

PATIENT

DRUGS (3)
  1. SPRAVATO [Suspect]
     Active Substance: ESKETAMINE
     Indication: Product used for unknown indication
     Route: 045
  2. KETAMINE [Concomitant]
     Active Substance: KETAMINE
  3. KETAMINE [Concomitant]
     Active Substance: KETAMINE

REACTIONS (1)
  - Off label use [Unknown]
